FAERS Safety Report 4565716-5 (Version None)
Quarter: 2005Q1

REPORT INFORMATION
  Report Type: 
  Country: None (occurrence: None)
  Receive Date: 20050126
  Receipt Date: 20050113
  Transmission Date: 20050727
  Serious: Yes (Hospitalization)
  Sender: FDA-Public Use
  Company Number: HQWYE992022OCT04

PATIENT
  Age: 46 Year
  Sex: Male
  Weight: 88.53 kg

DRUGS (19)
  1. RAPAMUNE [Suspect]
     Indication: PROPHYLAXIS AGAINST TRANSPLANT REJECTION
     Dosage: 6 MG 1X PER 1 DAY, ORAL
     Route: 048
     Dates: start: 20020311, end: 20041015
  2. CYCLOSPORINE [Suspect]
  3. ERYTHROPOIETIN (ERYTHROPOIETIN) [Concomitant]
  4. ARANESP [Concomitant]
  5. GLYBURIDE [Concomitant]
  6. CORTISONE (CORTISONE) [Concomitant]
  7. RANITIDINE [Concomitant]
  8. CALCIUM CARBONATE (CALCIUM CARBONATE) [Concomitant]
  9. BENZOYL PEROXIDE (BENZOYL PEROXIDE) [Concomitant]
  10. VIAGRA [Concomitant]
  11. NPH INSULIN [Concomitant]
  12. MULTIVIT (VITAMINS NOS) [Concomitant]
  13. CALCITRIOL [Concomitant]
  14. CLONIDINE [Concomitant]
  15. ATENOLOL [Concomitant]
  16. DOXAZOSIN MESYLATE [Concomitant]
  17. HYDROCHLOROTHIAZIDE [Concomitant]
  18. LIPITOR [Concomitant]
  19. PREDNISONE [Concomitant]

REACTIONS (11)
  - ANAEMIA [None]
  - AORTIC VALVE DISEASE [None]
  - BLOOD GLUCOSE INCREASED [None]
  - CARDIOMEGALY [None]
  - DIALYSIS [None]
  - FLUID OVERLOAD [None]
  - GRAFT LOSS [None]
  - MITRAL VALVE DISEASE [None]
  - PLEURAL EFFUSION [None]
  - STAPHYLOCOCCAL BACTERAEMIA [None]
  - WEIGHT DECREASED [None]
